FAERS Safety Report 8391527-9 (Version None)
Quarter: 2012Q1

REPORT INFORMATION
  Report Type: 
  Country: None (occurrence: None)
  Receive Date: 20120323
  Receipt Date: 20110602
  Transmission Date: 20120608
  Serious: Yes (Disabling)
  Sender: FDA-Public Use
  Company Number: 163-21880-11033398

PATIENT
  Age: 74 Year
  Sex: Female

DRUGS (18)
  1. ACETAMINOPHEN [Concomitant]
  2. FAMOTIDINE [Concomitant]
  3. REVLIMID [Suspect]
     Indication: MULTIPLE MYELOMA
     Dosage: 25 MG, DAILY FOR 21 DAYS OFF 7 DAYS, PO
     Route: 048
     Dates: start: 20110311
  4. LEVOTHYROXINE SODIUM [Concomitant]
  5. VITAMIN E [Concomitant]
  6. ATIVAN [Concomitant]
  7. DEXAMETHASONE [Suspect]
     Indication: PRODUCT USED FOR UNKNOWN INDICATION
     Dosage: 20 MG, WEEKLY
     Dates: start: 20110314
  8. NIACIN [Concomitant]
  9. NORTRIPTYLINE HCL [Concomitant]
  10. PLAVIX [Concomitant]
  11. LOSARTAN/HCTZ (HYZAAR) [Concomitant]
  12. GLUCOSAMINE/MSM (GLUCOSAMINE W/METHYLSULFONYLMETHANE) [Concomitant]
  13. CALCIUM CARBONATE [Concomitant]
  14. ASPIRIN [Concomitant]
  15. FISH OIL (FISH OIL) [Concomitant]
  16. METOPROLOL ER (METOPROLOL SUCCINATE) [Concomitant]
  17. LIPITOR [Concomitant]
  18. ANTIHYPERTENSIVES (ANTIHYPERTENSIVES) [Concomitant]

REACTIONS (8)
  - DIZZINESS [None]
  - HYPOTENSION [None]
  - TREMOR [None]
  - OEDEMA MOUTH [None]
  - CONFUSIONAL STATE [None]
  - LETHARGY [None]
  - DIARRHOEA [None]
  - ASTHENIA [None]
